FAERS Safety Report 20015710 (Version 1)
Quarter: 2021Q4

REPORT INFORMATION
  Report Type: Spontaneous
  Country: US (occurrence: None)
  Receive Date: 20211101
  Receipt Date: 20211101
  Transmission Date: 20220303
  Serious: Yes (Other)
  Sender: FDA-Public Use
  Company Number: None

PATIENT
  Age: 27 Year
  Sex: Female
  Weight: 70.65 kg

DRUGS (5)
  1. REGEN-COV [Suspect]
     Active Substance: CASIRIVIMAB\IMDEVIMAB
     Indication: COVID-19 pneumonia
     Dosage: OTHER FREQUENCY : ONE TIME DOSE;?
     Route: 058
     Dates: start: 20211020, end: 20211020
  2. REGEN-COV [Suspect]
     Active Substance: CASIRIVIMAB\IMDEVIMAB
     Indication: Maternal exposure during pregnancy
  3. REGEN-COV [Suspect]
     Active Substance: CASIRIVIMAB\IMDEVIMAB
     Indication: COVID-19 pneumonia
     Dosage: OTHER FREQUENCY : ONCE;?
     Route: 058
     Dates: start: 20211020, end: 20211020
  4. REGEN-COV [Suspect]
     Active Substance: CASIRIVIMAB\IMDEVIMAB
     Indication: Maternal exposure during pregnancy
  5. REGEN-COV [Concomitant]
     Active Substance: CASIRIVIMAB\IMDEVIMAB
     Dates: start: 20211020, end: 20211020

REACTIONS (2)
  - Maternal exposure during pregnancy [None]
  - Stillbirth [None]

NARRATIVE: CASE EVENT DATE: 20211027
